FAERS Safety Report 7922173-6 (Version None)
Quarter: 2011Q4

REPORT INFORMATION
  Report Type: 
  Country: None (occurrence: None)
  Receive Date: 20111117
  Receipt Date: 20110124
  Transmission Date: 20120403
  Serious: No
  Sender: FDA-Public Use
  Company Number: US-AMGEN-USASP2011001714

PATIENT
  Sex: Female

DRUGS (1)
  1. ENBREL [Suspect]
     Indication: RHEUMATOID ARTHRITIS
     Dosage: 50 MG, QWK

REACTIONS (6)
  - BUNION [None]
  - EYELID FUNCTION DISORDER [None]
  - DRUG INEFFECTIVE [None]
  - OCULAR DISCOMFORT [None]
  - HEADACHE [None]
  - RHEUMATOID ARTHRITIS [None]
